FAERS Safety Report 11610836 (Version 1)
Quarter: 2015Q4

REPORT INFORMATION
  Report Type: Spontaneous
  Country: US (occurrence: None)
  Receive Date: 20151007
  Receipt Date: 20151007
  Transmission Date: 20160304
  Serious: Yes (Death)
  Sender: FDA-Public Use
  Company Number: None

PATIENT
  Age: 74 Year
  Sex: Male
  Weight: 81.4 kg

DRUGS (1)
  1. RIVAROXABAN [Suspect]
     Active Substance: RIVAROXABAN
     Indication: JOINT SWELLING
     Route: 048
     Dates: start: 20150824, end: 20151004

REACTIONS (3)
  - Pulmonary haemorrhage [None]
  - Exsanguination [None]
  - Haemoptysis [None]

NARRATIVE: CASE EVENT DATE: 20151004
